FAERS Safety Report 16968567 (Version 1)
Quarter: 2019Q4

REPORT INFORMATION
  Report Type: Report from Study
  Country: None (occurrence: CL)
  Receive Date: 20191029
  Receipt Date: 20191029
  Transmission Date: 20200122
  Serious: Yes (Other)
  Sender: FDA-Public Use
  Company Number: CL-ABBVIE-19K-034-2980232-00

PATIENT
  Age: 67 Year
  Sex: Male

DRUGS (1)
  1. HUMIRA [Suspect]
     Active Substance: ADALIMUMAB
     Indication: CROHN^S DISEASE
     Route: 058
     Dates: start: 20170321

REACTIONS (6)
  - Strangulated hernia [Unknown]
  - Arthralgia [Not Recovered/Not Resolved]
  - Tendon disorder [Unknown]
  - Diarrhoea [Recovering/Resolving]
  - Back pain [Not Recovered/Not Resolved]
  - Cartilage injury [Unknown]

NARRATIVE: CASE EVENT DATE: 201905
